FAERS Safety Report 4721361-X (Version None)
Quarter: 2005Q3

REPORT INFORMATION
  Report Type: 
  Country: None (occurrence: None)
  Receive Date: 20050721
  Receipt Date: 20040720
  Transmission Date: 20060218
  Serious: No
  Sender: FDA-Public Use
  Company Number: US-BRISTOL-MYERS SQUIBB COMPANY-12646071

PATIENT
  Age: 84 Year
  Sex: Female
  Weight: 64 kg

DRUGS (5)
  1. COUMADIN [Suspect]
     Indication: AORTIC VALVE REPLACEMENT
     Dosage: DOSAGE: 5MG AND 2.5MG ALTERNATING DAILY
     Route: 048
  2. NORVASC [Concomitant]
  3. DARVOCET [Concomitant]
  4. NEXIUM [Concomitant]
  5. XANAX [Concomitant]

REACTIONS (3)
  - ANOREXIA [None]
  - DYSPNOEA [None]
  - FATIGUE [None]
